FAERS Safety Report 5237438-9 (Version None)
Quarter: 2007Q1

REPORT INFORMATION
  Report Type: 
  Country: None (occurrence: None)
  Receive Date: 20070213
  Receipt Date: 20070206
  Transmission Date: 20070707
  Serious: Yes (Hospitalization)
  Sender: FDA-Public Use
  Company Number: US-ALLERGAN-0701283US

PATIENT

DRUGS (1)
  1. LUMIGAN VS TRAVATAN [Suspect]
     Indication: GLAUCOMA
     Route: 047

REACTIONS (1)
  - ASTHMA [None]
